FAERS Safety Report 7052236-1 (Version None)
Quarter: 2010Q4

REPORT INFORMATION
  Report Type: 
  Country: None (occurrence: None)
  Receive Date: 20101018
  Receipt Date: 20101018
  Transmission Date: 20110411
  Serious: No
  Sender: FDA-Public Use
  Company Number: None

PATIENT
  Age: 3 Year
  Sex: Female
  Weight: 17.2367 kg

DRUGS (1)
  1. CEFDINIR [Suspect]
     Indication: EAR INFECTION
     Dosage: 4.5 MG DAILY PO
     Route: 048
     Dates: start: 20100825, end: 20100904

REACTIONS (6)
  - AURICULAR SWELLING [None]
  - DIARRHOEA [None]
  - PAIN IN EXTREMITY [None]
  - PRURITUS [None]
  - SERUM SICKNESS [None]
  - URTICARIA [None]
